FAERS Safety Report 16272036 (Version 1)
Quarter: 2019Q2

REPORT INFORMATION
  Report Type: Spontaneous
  Country: US (occurrence: US)
  Receive Date: 20190506
  Receipt Date: 20190506
  Transmission Date: 20190711
  Serious: Yes (Other)
  Sender: FDA-Public Use
  Company Number: US-ZYDUS-036552

PATIENT
  Age: 53 Year
  Sex: Female

DRUGS (4)
  1. METOPROLOL/METOPROLOL FUMARATE/METOPROLOL SUCCINATE/METOPROLOL TARTRATE [Suspect]
     Active Substance: METOPROLOL
     Indication: CARDIAC FAILURE
     Route: 065
  2. FUROSEMIDE. [Interacting]
     Active Substance: FUROSEMIDE
     Indication: CARDIAC FAILURE
     Route: 042
  3. IVABRADINE [Interacting]
     Active Substance: IVABRADINE
     Indication: CARDIAC FAILURE
     Route: 065
  4. METOPROLOL/METOPROLOL FUMARATE/METOPROLOL SUCCINATE/METOPROLOL TARTRATE [Interacting]
     Active Substance: METOPROLOL
     Indication: CARDIAC FAILURE
     Route: 065

REACTIONS (5)
  - Drug interaction [Unknown]
  - Torsade de pointes [Recovered/Resolved]
  - Palpitations [Recovered/Resolved]
  - Syncope [Recovered/Resolved]
  - Electrocardiogram QT prolonged [Recovered/Resolved]
